FAERS Safety Report 5241707-6 (Version None)
Quarter: 2007Q1

REPORT INFORMATION
  Report Type: 
  Country: None (occurrence: None)
  Receive Date: 20070220
  Receipt Date: 20070208
  Transmission Date: 20070707
  Serious: Yes (Hospitalization, Disabling)
  Sender: FDA-Public Use
  Company Number: BE-ROCHE-482192

PATIENT
  Age: 4 Year
  Sex: Female
  Weight: 13 kg

DRUGS (3)
  1. ROCEPHIN [Suspect]
     Indication: SEPSIS
     Route: 042
     Dates: start: 20061215, end: 20061222
  2. ROCEPHIN [Suspect]
     Route: 042
     Dates: start: 20061228, end: 20070109
  3. ROCEPHIN [Suspect]
     Route: 042
     Dates: start: 20070110, end: 20070116

REACTIONS (2)
  - RENAL FAILURE [None]
  - URINARY SEDIMENT PRESENT [None]
